FAERS Safety Report 18811766 (Version 1)
Quarter: 2021Q1

REPORT INFORMATION
  Report Type: Spontaneous
  Country: AU (occurrence: AU)
  Receive Date: 20210129
  Receipt Date: 20210129
  Transmission Date: 20210419
  Serious: Yes (Other)
  Sender: FDA-Public Use
  Company Number: AU-ALLERGAN-2104169US

PATIENT
  Sex: Female

DRUGS (1)
  1. ESCITALOPRAM OXALATE ? BP [Suspect]
     Active Substance: ESCITALOPRAM OXALATE
     Indication: BIPOLAR II DISORDER
     Route: 048

REACTIONS (9)
  - Depressed mood [Recovered/Resolved]
  - Product administered to patient of inappropriate age [Unknown]
  - Anxiety [Unknown]
  - Aphasia [Unknown]
  - Product use in unapproved indication [Unknown]
  - Anorgasmia [Unknown]
  - Muscle twitching [Unknown]
  - Suicidal ideation [Unknown]
  - Decreased appetite [Unknown]

NARRATIVE: CASE EVENT DATE: 20130413
